FAERS Safety Report 4385712-0 (Version None)
Quarter: 2004Q2

REPORT INFORMATION
  Report Type: 
  Country: None (occurrence: None)
  Receive Date: 20040623
  Receipt Date: 20040607
  Transmission Date: 20050107
  Serious: Yes (Other)
  Sender: FDA-Public Use
  Company Number: 2004-DE-02930BY

PATIENT
  Age: 55 Year
  Sex: Male

DRUGS (3)
  1. KINZAL (TELMISARTAN) (TELMISARTAN) [Suspect]
     Dosage: 80 MG
     Route: 048
  2. METOPROLOL (METOPROLOL) [Concomitant]
  3. ATORVASTATIN CALCIUM [Concomitant]

REACTIONS (2)
  - CHEST DISCOMFORT [None]
  - LIMB DISCOMFORT [None]
